FAERS Safety Report 21355205 (Version 4)
Quarter: 2022Q4

REPORT INFORMATION
  Report Type: Spontaneous
  Country: JP (occurrence: JP)
  Receive Date: 20220920
  Receipt Date: 20221102
  Transmission Date: 20230113
  Serious: Yes (Death)
  Sender: FDA-Public Use
  Company Number: JP-MSD-M2022-40064

PATIENT
  Age: 95 Year
  Sex: Female
  Weight: 36 kg

DRUGS (2)
  1. LAGEVRIO [Suspect]
     Active Substance: MOLNUPIRAVIR
     Indication: COVID-19 treatment
     Dosage: 800 MILLIGRAM, BID
     Route: 048
     Dates: start: 20220826, end: 20220830
  2. ACETAMINOPHEN [Concomitant]
     Active Substance: ACETAMINOPHEN
     Indication: Pyrexia
     Dosage: 300 MILLIGRAM, TID
     Route: 048
     Dates: start: 20220826, end: 202208

REACTIONS (2)
  - Dehydration [Fatal]
  - Decreased appetite [Fatal]

NARRATIVE: CASE EVENT DATE: 20220828
